FAERS Safety Report 15559481 (Version 1)
Quarter: 2018Q4

REPORT INFORMATION
  Report Type: Spontaneous
  Country: CA (occurrence: CA)
  Receive Date: 20181029
  Receipt Date: 20181029
  Transmission Date: 20190205
  Serious: Yes (Other)
  Sender: FDA-Public Use
  Company Number: CA-009507513-1810CAN012579

PATIENT
  Age: 54 Year
  Sex: Female

DRUGS (1)
  1. CARBIDOPA (+) LEVODOPA [Suspect]
     Active Substance: CARBIDOPA\LEVODOPA
     Indication: PARKINSON^S DISEASE
     Dosage: UNK
     Route: 048

REACTIONS (4)
  - Rash pruritic [Recovered/Resolved]
  - Reaction to excipient [Recovered/Resolved]
  - Immune-mediated adverse reaction [Recovered/Resolved]
  - Rash maculo-papular [Recovered/Resolved]
